FAERS Safety Report 19020453 (Version 1)
Quarter: 2021Q1

REPORT INFORMATION
  Report Type: Other
  Country: US (occurrence: US)
  Receive Date: 20210317
  Receipt Date: 20210317
  Transmission Date: 20210420
  Serious: Yes (Other)
  Sender: FDA-Public Use
  Company Number: US-ROCHE-2788919

PATIENT
  Age: 46 Year
  Sex: Male
  Weight: 69.01 kg

DRUGS (1)
  1. OCREVUS [Suspect]
     Active Substance: OCRELIZUMAB
     Indication: RELAPSING-REMITTING MULTIPLE SCLEROSIS
     Dosage: (PRESCRIBED: INITIAL DOSE INFUSE 300 MG ON DAY 1 AND DAY 15, SUBSEQUENT DOSE INFUSE 600 MG EVERY 6 M
     Route: 042
     Dates: start: 2018

REACTIONS (4)
  - Therapeutic response shortened [Not Recovered/Not Resolved]
  - Back pain [Not Recovered/Not Resolved]
  - Multiple sclerosis relapse [Not Recovered/Not Resolved]
  - COVID-19 [Unknown]

NARRATIVE: CASE EVENT DATE: 202102
